FAERS Safety Report 6412731-2 (Version None)
Quarter: 2009Q4

REPORT INFORMATION
  Report Type: 
  Country: None (occurrence: None)
  Receive Date: 20091023
  Receipt Date: 20091020
  Transmission Date: 20100525
  Serious: Yes (Other)
  Sender: FDA-Public Use
  Company Number: US-JNJFOC-20091006308

PATIENT
  Age: 92 Year
  Sex: Male

DRUGS (11)
  1. FAMOTIDINE [Suspect]
     Route: 050
  2. FAMOTIDINE [Suspect]
     Indication: DRUG USE FOR UNKNOWN INDICATION
     Route: 050
  3. ASPIRIN [Concomitant]
  4. HEPARIN [Concomitant]
     Route: 058
  5. METOPROLOL [Concomitant]
  6. FENTANYL-100 [Concomitant]
     Route: 042
  7. MIDAZOLAM HCL [Concomitant]
     Route: 042
  8. VITAMIN K TAB [Concomitant]
     Indication: INTERNATIONAL NORMALISED RATIO INCREASED
     Route: 058
  9. INSULIN [Concomitant]
  10. VANCOMYCIN [Concomitant]
     Indication: GENITOURINARY TRACT INFECTION
     Route: 042
  11. TICARCILLIN/CLAVULANATE POTASSIUM [Concomitant]
     Indication: GENITOURINARY TRACT INFECTION
     Route: 042

REACTIONS (2)
  - LONG QT SYNDROME [None]
  - TORSADE DE POINTES [None]
